FAERS Safety Report 4518225-3 (Version None)
Quarter: 2004Q4

REPORT INFORMATION
  Report Type: 
  Country: None (occurrence: None)
  Receive Date: 20041130
  Receipt Date: 20041112
  Transmission Date: 20050328
  Serious: Yes (Other)
  Sender: FDA-Public Use
  Company Number: USA041183997

PATIENT
  Age: 22 Year
  Sex: Female
  Weight: 59 kg

DRUGS (1)
  1. STRATTERA [Suspect]
     Indication: ATTENTION DEFICIT/HYPERACTIVITY DISORDER
     Dates: start: 20041001

REACTIONS (7)
  - ABNORMAL FAECES [None]
  - EATING DISORDER [None]
  - HAEMATOCHEZIA [None]
  - NAUSEA [None]
  - SPEECH DISORDER [None]
  - ULCER [None]
  - WEIGHT DECREASED [None]
